FAERS Safety Report 4558922-7 (Version None)
Quarter: 2005Q1

REPORT INFORMATION
  Report Type: 
  Country: None (occurrence: None)
  Receive Date: 20050121
  Receipt Date: 20050112
  Transmission Date: 20050727
  Serious: Yes (Hospitalization, Disabling)
  Sender: FDA-Public Use
  Company Number: AU-MERCK-0501AUS00122

PATIENT
  Sex: Female

DRUGS (1)
  1. VIOXX [Suspect]
     Route: 048
     Dates: start: 20010101, end: 20040101

REACTIONS (3)
  - CARDIAC DISORDER [None]
  - DISABILITY [None]
  - MYOCARDIAL INFARCTION [None]
